FAERS Safety Report 18652564 (Version 5)
Quarter: 2021Q2

REPORT INFORMATION
  Report Type: Spontaneous
  Country: DE (occurrence: DE)
  Receive Date: 20201222
  Receipt Date: 20210526
  Transmission Date: 20210717
  Serious: Yes (Life-Threatening, Hospitalization, Other)
  Sender: FDA-Public Use
  Company Number: DE-009507513-2012DEU008802

PATIENT
  Age: 58 Year
  Sex: Female

DRUGS (4)
  1. TEMOZOLOMIDE. [Suspect]
     Active Substance: TEMOZOLOMIDE
     Indication: NEUROENDOCRINE CARCINOMA METASTATIC
     Dosage: 150 MILLIGRAM/SQ. METER
     Route: 048
     Dates: start: 201906, end: 2019
  2. LUTETIUM (177LU) DOTATATE [Concomitant]
     Active Substance: LUTETIUM OXODOTREOTIDE LU-177
     Indication: NEUROENDOCRINE CARCINOMA METASTATIC
     Route: 042
  3. CAPECITABINE. [Suspect]
     Active Substance: CAPECITABINE
     Indication: NEUROENDOCRINE TUMOUR
     Route: 048
     Dates: start: 201906, end: 201907
  4. CAPECITABINE. [Suspect]
     Active Substance: CAPECITABINE
     Indication: NEUROENDOCRINE CARCINOMA METASTATIC
     Dosage: 538 MILLIGRAM/SQ. METER, CYCLICAL
     Route: 048
     Dates: start: 201906, end: 2019

REACTIONS (8)
  - Mastitis [Recovered/Resolved]
  - Drug effective for unapproved indication [Unknown]
  - Myelosuppression [Recovered/Resolved]
  - Breast necrosis [Recovered/Resolved]
  - Off label use [Unknown]
  - Febrile neutropenia [Recovered/Resolved]
  - Pneumonia fungal [Recovered/Resolved]
  - Haematotoxicity [Recovered/Resolved]

NARRATIVE: CASE EVENT DATE: 2019
